FAERS Safety Report 14224728 (Version 2)
Quarter: 2018Q1

REPORT INFORMATION
  Report Type: Spontaneous
  Country: PL (occurrence: PL)
  Receive Date: 20171127
  Receipt Date: 20180118
  Transmission Date: 20180508
  Serious: Yes (Other)
  Sender: FDA-Public Use
  Company Number: PL-009507513-1707POL009419

PATIENT
  Age: 60 Year
  Sex: Female

DRUGS (22)
  1. PEMBROLIZUMAB. [Suspect]
     Active Substance: PEMBROLIZUMAB
     Dosage: 200 MG, Q3W, THIRD CYCLE
     Route: 042
     Dates: start: 20170828
  2. FAYTON [Concomitant]
     Indication: PROPHYLAXIS
     Dosage: 4 MG, STRENGTH: 4MG/5ML; 1 PHIAL
     Route: 042
     Dates: start: 20170717
  3. MAGNESIUM SULFATE. [Concomitant]
     Active Substance: MAGNESIUM SULFATE
     Dosage: 3RD CYCLE: 1 AMPULE, UNK
     Dates: start: 20170828
  4. GEMSOL [Suspect]
     Active Substance: GEMCITABINE HYDROCHLORIDE
     Indication: TRIPLE NEGATIVE BREAST CANCER
     Dosage: 1ST CYCLE: 1960 MG, CONCENTRATE: 100MG/25ML; 1 PHIAL
     Route: 042
     Dates: start: 20170717
  5. PEMBROLIZUMAB. [Suspect]
     Active Substance: PEMBROLIZUMAB
     Dosage: 200 MG, EVERY 4 WEEKS, 4TH CYCLE
     Route: 042
     Dates: start: 20170925
  6. PEMBROLIZUMAB. [Suspect]
     Active Substance: PEMBROLIZUMAB
     Dosage: 200 MG, EVERY 4 WEEKS, 5TH CYCLE
     Route: 042
     Dates: start: 20171023
  7. DEXAVEN [Concomitant]
     Active Substance: DEXAMETHASONE
     Indication: PROPHYLAXIS
     Dosage: 1ST CYCLE: 4 MG, UNK
     Route: 042
     Dates: start: 20170717
  8. ONDANSETRON [Concomitant]
     Active Substance: ONDANSETRON
     Indication: PROPHYLAXIS
     Dosage: 1ST CYCLE: 4 MG, STRENGTH: 4MG/2ML - PACKAGE-5 AM P.2ML
     Route: 042
     Dates: start: 20170717
  9. ONDANSETRON [Concomitant]
     Active Substance: ONDANSETRON
     Dosage: 2ND CYCLE: 4 MG, STRENGTH: 4MG/2ML - PACKAGE-5 AM P.2ML
     Route: 042
     Dates: start: 20170807
  10. ONDANSETRON [Concomitant]
     Active Substance: ONDANSETRON
     Dosage: 3RD CYCLE: 4 MG, STRENGTH: 4MG/2ML - PACKAGE-5 AM P.2ML
     Route: 042
     Dates: start: 20170828
  11. MAGNESIUM SULFATE. [Concomitant]
     Active Substance: MAGNESIUM SULFATE
     Indication: PROPHYLAXIS
     Dosage: 1ST CYCLE: 1 AMPULE, UNK
     Dates: start: 20170717
  12. CARBOMEDAC [Concomitant]
     Active Substance: CARBOPLATIN
     Dosage: 2ND CYCLE: 255 MG, STRENGTH ALSO REPORTED AS : AUC 2-255MG; 1 PHIAL
     Route: 042
     Dates: start: 20170807
  13. PEMBROLIZUMAB. [Suspect]
     Active Substance: PEMBROLIZUMAB
     Dosage: 200 MG, Q3W, SECOND CYCLE
     Route: 042
     Dates: start: 20170807
  14. CARBOMEDAC [Concomitant]
     Active Substance: CARBOPLATIN
     Dosage: 3RD CYCLE: 255 MG, STRENGTH ALSO REPORTED AS : AUC 2-255MG; 1 PHIAL
     Route: 042
     Dates: start: 20170828
  15. MAGNESIUM SULFATE. [Concomitant]
     Active Substance: MAGNESIUM SULFATE
     Dosage: 2ND CYCLE: 1 AMPULE, UNK
     Dates: start: 20170807
  16. PEMBROLIZUMAB. [Suspect]
     Active Substance: PEMBROLIZUMAB
     Dosage: 200 MG, EVERY 4 WEEKS, 6TH CYCLE
     Route: 042
     Dates: start: 20171120
  17. GEMSOL [Suspect]
     Active Substance: GEMCITABINE HYDROCHLORIDE
     Dosage: 3RD CYCLE: 1960 MG, CONCENTRATE: 100MG/25ML; 1 PHIAL
     Route: 042
     Dates: start: 20170828
  18. CARBOMEDAC [Concomitant]
     Active Substance: CARBOPLATIN
     Indication: TRIPLE NEGATIVE BREAST CANCER
     Dosage: 1ST CYCLE: 255 MG, STRENGTH ALSO REPORTED AS : AUC 2-255MG; 1 PHIAL
     Route: 042
     Dates: start: 20170717
  19. DEXAVEN [Concomitant]
     Active Substance: DEXAMETHASONE
     Dosage: 3RD CYCLE: 4 MG, UNK
     Route: 042
     Dates: start: 20170828
  20. PEMBROLIZUMAB. [Suspect]
     Active Substance: PEMBROLIZUMAB
     Indication: TRIPLE NEGATIVE BREAST CANCER
     Dosage: 200 MG, Q3W, FIRST CYCLE
     Route: 042
     Dates: start: 20170717
  21. GEMSOL [Suspect]
     Active Substance: GEMCITABINE HYDROCHLORIDE
     Dosage: 2ND CYCLE: 1960 MG, CONCENTRATE: 100MG/25ML; 1 PHIAL
     Dates: start: 20170807
  22. DEXAVEN [Concomitant]
     Active Substance: DEXAMETHASONE
     Dosage: 2ND CYCLE: 4 MG, UNK
     Route: 042
     Dates: start: 20170807

REACTIONS (10)
  - Neutrophil count decreased [Recovering/Resolving]
  - Rash generalised [Recovered/Resolved]
  - Rash [Recovered/Resolved]
  - Inappropriate schedule of drug administration [Unknown]
  - Malignant neoplasm progression [Unknown]
  - Pyrexia [Recovered/Resolved]
  - Rash [Recovered/Resolved]
  - Skin discolouration [Recovering/Resolving]
  - Off label use [Unknown]
  - Diarrhoea [Recovered/Resolved]

NARRATIVE: CASE EVENT DATE: 2017
